FAERS Safety Report 17829382 (Version 1)
Quarter: 2020Q2

REPORT INFORMATION
  Report Type: Spontaneous
  Country: US (occurrence: US)
  Receive Date: 20200527
  Receipt Date: 20200527
  Transmission Date: 20200714
  Serious: Yes (Other)
  Sender: FDA-Public Use
  Company Number: None

PATIENT
  Age: 53 Year
  Sex: Female
  Weight: 130.95 kg

DRUGS (1)
  1. AMPICILIN-SULBACTAM [Suspect]
     Active Substance: AMPICILLIN SODIUM\SULBACTAM SODIUM
     Indication: DEVICE RELATED INFECTION
     Route: 042
     Dates: start: 20200512, end: 20200518

REACTIONS (4)
  - Lip swelling [None]
  - Mouth swelling [None]
  - Peripheral swelling [None]
  - Oral discomfort [None]

NARRATIVE: CASE EVENT DATE: 20200518
